FAERS Safety Report 10111413 (Version 1)
Quarter: 2014Q2

REPORT INFORMATION
  Report Type: Spontaneous
  Country: US (occurrence: None)
  Receive Date: 20140421
  Receipt Date: 20140421
  Transmission Date: 20141212
  Serious: Yes (Other)
  Sender: FDA-Public Use
  Company Number: AEGR000304

PATIENT
  Age: 61 Year
  Sex: Female
  Weight: 64.9 kg

DRUGS (5)
  1. JUXTAPID (LOMITAPIDE) CAPSULE, 5 MG [Suspect]
     Indication: TYPE IIA HYPERLIPIDAEMIA
     Dates: start: 20130919
  2. LIPITOR (ATOVASTATIN CALCIUM) [Concomitant]
  3. TRILIPIX (CHOLINE FENOFIBRATE) [Concomitant]
  4. NIACIN (NICOTINE ACID) [Concomitant]
  5. WELCHOL (COLESEVELAM HYDROCHLORIDE) (625 MILLIGRAM, TABLET) (COLESEVELAM HYDROCHLORIDE) [Suspect]

REACTIONS (7)
  - Liver function test abnormal [None]
  - Hepatic enzyme increased [None]
  - Abdominal discomfort [None]
  - Dyspepsia [None]
  - Abdominal distension [None]
  - Nausea [None]
  - Gastrooesophageal reflux disease [None]
